FAERS Safety Report 21006292 (Version 3)
Quarter: 2022Q3

REPORT INFORMATION
  Report Type: Spontaneous
  Country: US (occurrence: US)
  Receive Date: 20220624
  Receipt Date: 20220902
  Transmission Date: 20221027
  Serious: Yes (Death, Life-Threatening, Hospitalization, Disabling, Other)
  Sender: FDA-Public Use
  Company Number: US-BRISTOL-MYERS SQUIBB COMPANY-2022-057936

PATIENT
  Age: 93 Year
  Sex: Female

DRUGS (9)
  1. SPRYCEL [Suspect]
     Active Substance: DASATINIB
     Indication: Chronic myeloid leukaemia
     Route: 048
     Dates: start: 20211115, end: 202205
  2. SPRYCEL [Suspect]
     Active Substance: DASATINIB
     Indication: Chronic myeloid leukaemia
  3. ASPIRIN [Suspect]
     Active Substance: ASPIRIN
     Indication: Cardiovascular disorder
     Route: 048
     Dates: end: 202205
  4. ASPIRIN [Suspect]
     Active Substance: ASPIRIN
     Indication: Coronary artery disease
  5. ASACOL HD [Concomitant]
     Active Substance: MESALAMINE
     Indication: Product used for unknown indication
     Dosage: 1 TABLET DELAYED RELEASE, 4 TIMES PER DAY
     Route: 048
  6. KLOR-CON [Concomitant]
     Active Substance: POTASSIUM CHLORIDE
     Indication: Product used for unknown indication
     Dosage: 1 TABLET EXTENDED RELEASE, DAILY FOR 3 DAYS
     Route: 048
  7. LASIX [Concomitant]
     Active Substance: FUROSEMIDE
     Indication: Product used for unknown indication
     Dosage: 1 TABLET
     Route: 048
  8. SINGULAIR [Concomitant]
     Active Substance: MONTELUKAST SODIUM
     Indication: Product used for unknown indication
     Dosage: 1 TABLET EVERY EVENING
     Route: 048
  9. TYLENOL [Concomitant]
     Active Substance: ACETAMINOPHEN
     Indication: Product used for unknown indication
     Dosage: 2 CAPSULE BID PRN
     Route: 048

REACTIONS (4)
  - Subdural haematoma [Fatal]
  - Skin laceration [Unknown]
  - Head injury [Unknown]
  - Fall [Unknown]

NARRATIVE: CASE EVENT DATE: 20220528
